FAERS Safety Report 19177490 (Version 2)
Quarter: 2021Q2

REPORT INFORMATION
  Report Type: Report from Study
  Country: None (occurrence: US)
  Receive Date: 20210425
  Receipt Date: 20210505
  Transmission Date: 20210717
  Serious: No
  Sender: FDA-Public Use
  Company Number: US-ABBVIE-21K-163-3823810-00

PATIENT
  Sex: Male
  Weight: 92.62 kg

DRUGS (5)
  1. RINVOQ [Suspect]
     Active Substance: UPADACITINIB
     Indication: RHEUMATOID ARTHRITIS
     Route: 048
     Dates: start: 202101, end: 2021
  2. MODERNA COVID?19 VACCINE [Suspect]
     Active Substance: CX-024414
     Dosage: MODERNA, SECOND DOSE
     Route: 030
     Dates: start: 202104, end: 202104
  3. LISINOPRIL. [Concomitant]
     Active Substance: LISINOPRIL
     Indication: BLOOD PRESSURE MEASUREMENT
  4. RINVOQ [Suspect]
     Active Substance: UPADACITINIB
     Route: 048
     Dates: start: 202102
  5. MODERNA COVID?19 VACCINE [Suspect]
     Active Substance: CX-024414
     Indication: COVID-19 IMMUNISATION
     Dosage: MODERNA, FIRST DOSE
     Route: 030
     Dates: start: 202103, end: 202103

REACTIONS (6)
  - Hypertension [Recovered/Resolved]
  - Illness [Recovered/Resolved]
  - White blood cell count increased [Recovered/Resolved]
  - Rheumatoid arthritis [Recovered/Resolved]
  - Dizziness [Unknown]
  - Lymphadenopathy [Recovered/Resolved]

NARRATIVE: CASE EVENT DATE: 2021
